FAERS Safety Report 4381994-X (Version None)
Quarter: 2004Q2

REPORT INFORMATION
  Report Type: 
  Country: None (occurrence: None)
  Receive Date: 20040615
  Receipt Date: 20040206
  Transmission Date: 20050107
  Serious: No
  Sender: FDA-Public Use
  Company Number: None

PATIENT

DRUGS (1)
  1. REMICADE            INFLIXIMAB [Suspect]
     Dosage: INJECTION

REACTIONS (4)
  - ASTHENIA [None]
  - COUGH [None]
  - PYREXIA [None]
  - RALES [None]
